FAERS Safety Report 20415983 (Version 1)
Quarter: 2022Q1

REPORT INFORMATION
  Report Type: Spontaneous
  Country: FR (occurrence: FR)
  Receive Date: 20220202
  Receipt Date: 20220202
  Transmission Date: 20220423
  Serious: Yes (Hospitalization)
  Sender: FDA-Public Use
  Company Number: None

PATIENT
  Age: 70 Year
  Sex: Male

DRUGS (4)
  1. ESOMEPRAZOLE [Suspect]
     Active Substance: ESOMEPRAZOLE
     Indication: Product used for unknown indication
     Dosage: 20 MILLIGRAM DAILY; 20MG/DAY LONG TERM
     Route: 048
     Dates: end: 20211206
  2. KARDEGIC [Suspect]
     Active Substance: ASPIRIN DL-LYSINE
     Indication: Cerebrovascular accident prophylaxis
     Dosage: 1 DOSAGE FORMS DAILY; 1 SACHET PER DAY LONG TERM, KARDEGIC 75 MG, POUDRE POUR SOLUTION BUVABLE EN SA
     Route: 048
     Dates: end: 20211206
  3. RAMIPRIL [Suspect]
     Active Substance: RAMIPRIL
     Indication: Product used for unknown indication
     Dosage: 1 DOSAGE FORMS DAILY; 5MG/DAY, LONG TERM, TRIATEC 5 MG, COMPRIME SECABLE
     Route: 048
     Dates: end: 20211206
  4. JANUMET [Suspect]
     Active Substance: METFORMIN HYDROCHLORIDE\SITAGLIPTIN PHOSPHATE
     Indication: Type 2 diabetes mellitus
     Dosage: DOSAGE NOT KNOWN, JANUMET 50 MG/1000 MG, COMPRIME PELLICULE
     Route: 048
     Dates: end: 20211206

REACTIONS (2)
  - Acute kidney injury [Recovering/Resolving]
  - Lactic acidosis [Recovering/Resolving]

NARRATIVE: CASE EVENT DATE: 20211206
